FAERS Safety Report 4544983-8 (Version None)
Quarter: 2005Q1

REPORT INFORMATION
  Report Type: 
  Country: None (occurrence: None)
  Receive Date: 20050105
  Receipt Date: 20041221
  Transmission Date: 20050727
  Serious: Yes (Hospitalization)
  Sender: FDA-Public Use
  Company Number: US-GLAXOSMITHKLINE-A0538243A

PATIENT
  Age: 58 Year
  Sex: Female

DRUGS (15)
  1. LAMICTAL [Suspect]
     Indication: BIPOLAR DISORDER
     Route: 048
     Dates: start: 20040701, end: 20041201
  2. WELLBUTRIN XL [Concomitant]
  3. LEXAPRO [Concomitant]
  4. VALIUM [Concomitant]
  5. TRILAFON [Concomitant]
  6. SYNTHROID [Concomitant]
  7. LOPRESSOR [Concomitant]
  8. ATROPINE [Concomitant]
  9. XALATAN [Concomitant]
  10. HUMALOG [Concomitant]
  11. LANTUS [Concomitant]
  12. DIOVAN [Concomitant]
  13. LIPITOR [Concomitant]
  14. MAXZIDE [Concomitant]
  15. VITAMIN E [Concomitant]

REACTIONS (21)
  - BLOOD GLUCOSE INCREASED [None]
  - BURNING SENSATION [None]
  - CELLULITIS [None]
  - CHILLS [None]
  - COORDINATION ABNORMAL [None]
  - DIPLOPIA [None]
  - DYSARTHRIA [None]
  - DYSPNOEA [None]
  - FALL [None]
  - FEELING COLD [None]
  - FOOT FRACTURE [None]
  - HALLUCINATION [None]
  - HYPOAESTHESIA [None]
  - MOTOR DYSFUNCTION [None]
  - MYOCARDIAL INFARCTION [None]
  - NEUROPATHY PERIPHERAL [None]
  - OEDEMA PERIPHERAL [None]
  - PAIN IN EXTREMITY [None]
  - RASH [None]
  - TREMOR [None]
  - VISUAL DISTURBANCE [None]
